FAERS Safety Report 6271466-X (Version None)
Quarter: 2009Q3

REPORT INFORMATION
  Report Type: 
  Country: None (occurrence: None)
  Receive Date: 20090717
  Receipt Date: 20090706
  Transmission Date: 20100115
  Serious: Yes (Other)
  Sender: FDA-Public Use
  Company Number: PHHY2009DE19280

PATIENT
  Sex: Female

DRUGS (4)
  1. LOCOL [Suspect]
     Indication: HYPERCHOLESTEROLAEMIA
     Dosage: 40 MG
     Route: 048
     Dates: start: 20020601, end: 20031201
  2. LOCOL [Suspect]
     Dosage: 80MG/DAY
     Route: 048
     Dates: start: 20030101, end: 20090601
  3. MARCUMAR [Concomitant]
  4. LISINOPRIL [Concomitant]

REACTIONS (9)
  - ABDOMINAL DISCOMFORT [None]
  - ASPARTATE AMINOTRANSFERASE INCREASED [None]
  - BILIARY TRACT OPERATION [None]
  - DECREASED APPETITE [None]
  - GAMMA-GLUTAMYLTRANSFERASE INCREASED [None]
  - HEPATIC ENZYME INCREASED [None]
  - HYPERBILIRUBINAEMIA [None]
  - MUSCULOSKELETAL CHEST PAIN [None]
  - MUSCULOSKELETAL PAIN [None]
